FAERS Safety Report 17054865 (Version 1)
Quarter: 2019Q4

REPORT INFORMATION
  Report Type: Spontaneous
  Country: CA (occurrence: CA)
  Receive Date: 20191120
  Receipt Date: 20191120
  Transmission Date: 20200122
  Serious: Yes (Hospitalization)
  Sender: FDA-Public Use
  Company Number: CA-HLSUS-2019-CA-001591

PATIENT
  Age: 65 Year
  Sex: Female

DRUGS (11)
  1. TOVIAZ [Concomitant]
     Active Substance: FESOTERODINE FUMARATE
  2. PANTOPRAZOLE [Concomitant]
     Active Substance: PANTOPRAZOLE
  3. PREGABALIN. [Concomitant]
     Active Substance: PREGABALIN
  4. CLOMIPRAMINE [Concomitant]
     Active Substance: CLOMIPRAMINE
  5. QUETIAPINE. [Concomitant]
     Active Substance: QUETIAPINE
  6. RAMIPRIL. [Concomitant]
     Active Substance: RAMIPRIL
  7. ASA [Concomitant]
     Active Substance: ASPIRIN
  8. CLOZAPINE. [Suspect]
     Active Substance: CLOZAPINE
     Indication: SCHIZOPHRENIA
     Route: 048
  9. ATORVASTATIN [Concomitant]
     Active Substance: ATORVASTATIN
  10. BACLOFEN. [Concomitant]
     Active Substance: BACLOFEN
  11. MYRBETRIQ [Concomitant]
     Active Substance: MIRABEGRON

REACTIONS (5)
  - Abdominal distension [Recovered/Resolved]
  - Abdominal tenderness [Recovered/Resolved]
  - Ileus paralytic [Recovered/Resolved]
  - Toxic dilatation of intestine [Recovered/Resolved]
  - Tachycardia [Recovered/Resolved]
